FAERS Safety Report 5273328-3 (Version None)
Quarter: 2007Q1

REPORT INFORMATION
  Report Type: 
  Country: None (occurrence: None)
  Receive Date: 20070319
  Receipt Date: 20070309
  Transmission Date: 20070707
  Serious: Yes (Hospitalization)
  Sender: FDA-Public Use
  Company Number: 2007SP002801

PATIENT
  Age: 70 Year
  Sex: Male

DRUGS (4)
  1. ISOSORBIDE MONONITRATE [Suspect]
     Indication: CARDIAC DISORDER
     Dates: start: 20070111
  2. IRESSA [Suspect]
     Indication: LUNG ADENOCARCINOMA
     Dosage: 250 MG;QD;PO
     Route: 048
     Dates: start: 20070111
  3. IRESSA [Suspect]
     Indication: METASTASIS
     Dosage: 250 MG;QD;PO
     Route: 048
     Dates: start: 20070111
  4. CEFTAZIDIME [Suspect]
     Indication: LUNG INFECTION
     Dates: start: 20070111

REACTIONS (1)
  - INTESTINAL OBSTRUCTION [None]
